FAERS Safety Report 5307413-4 (Version None)
Quarter: 2007Q2

REPORT INFORMATION
  Report Type: 
  Country: None (occurrence: None)
  Receive Date: 20070425
  Receipt Date: 20070423
  Transmission Date: 20071010
  Serious: Yes (Hospitalization)
  Sender: FDA-Public Use
  Company Number: HQWYE740623APR07

PATIENT
  Age: 86 Year
  Sex: Female

DRUGS (6)
  1. CORDARONE [Suspect]
     Dosage: 200 MG, FREQUENCY UNSPECIFIED
     Route: 048
     Dates: end: 20070111
  2. LYSANXIA [Concomitant]
     Dosage: DOSE UNKNOWN
     Route: 048
  3. BISOPROLOL FUMARATE [Suspect]
     Route: 048
     Dates: end: 20070203
  4. LASIX [Concomitant]
     Dosage: DOSE UNKNOWN
     Route: 048
  5. HEMIGOXINE NATIVELLE [Suspect]
     Route: 048
     Dates: end: 20070131
  6. SERMION [Suspect]
     Dosage: 3 UNIT EVERY 1 DAY
     Route: 048
     Dates: end: 20070130

REACTIONS (4)
  - ASPERGILLOSIS [None]
  - FALL [None]
  - MEMORY IMPAIRMENT [None]
  - PULMONARY FIBROSIS [None]
